FAERS Safety Report 15282547 (Version 1)
Quarter: 2018Q4

REPORT INFORMATION
  Report Type: Spontaneous
  Country: US (occurrence: US)
  Receive Date: 20180816
  Receipt Date: 20180816
  Transmission Date: 20190204
  Serious: Yes (Hospitalization, Other)
  Sender: FDA-Public Use
  Company Number: US-ACCORD-070707

PATIENT
  Age: 72 Year
  Sex: Male

DRUGS (4)
  1. TACROLIMUS. [Suspect]
     Active Substance: TACROLIMUS
     Indication: IMMUNOSUPPRESSION
     Dosage: IN THE MORNING
  2. PREDNISONE/PREDNISONE ACETATE [Suspect]
     Active Substance: PREDNISONE ACETATE
     Indication: IMMUNOSUPPRESSION
  3. VALGANCICLOVIR/VALGANCICLOVIR HYDROCHLORIDE [Concomitant]
     Indication: ANTIVIRAL PROPHYLAXIS
  4. LEFLUNOMIDE. [Concomitant]
     Active Substance: LEFLUNOMIDE
     Indication: HUMAN POLYOMAVIRUS INFECTION

REACTIONS (11)
  - Human polyomavirus infection [Recovering/Resolving]
  - Brain abscess [Recovered/Resolved]
  - Disease recurrence [Recovering/Resolving]
  - Nephropathy [Recovering/Resolving]
  - Disease progression [Recovering/Resolving]
  - Fungal infection [Recovered/Resolved]
  - Haematuria [Recovering/Resolving]
  - Inflammation [Recovering/Resolving]
  - Drug level increased [Recovering/Resolving]
  - Pulmonary mass [Recovered/Resolved]
  - Pulmonary fibrosis [Recovering/Resolving]

NARRATIVE: CASE EVENT DATE: 2015
